FAERS Safety Report 18308395 (Version 1)
Quarter: 2020Q3

REPORT INFORMATION
  Report Type: Spontaneous
  Country: US (occurrence: US)
  Receive Date: 20200924
  Receipt Date: 20200924
  Transmission Date: 20201103
  Serious: No
  Sender: FDA-Public Use
  Company Number: US-CHIESI USA, INC.-US-2020CHI000100

PATIENT

DRUGS (3)
  1. CLEVIPREX [Suspect]
     Active Substance: CLEVIDIPINE
     Indication: PRODUCT USED FOR UNKNOWN INDICATION
     Dosage: UNK
     Route: 042
  2. TPA [Concomitant]
     Active Substance: ALTEPLASE
     Indication: PRODUCT USED FOR UNKNOWN INDICATION
     Dosage: UNK
  3. CLEVIPREX [Suspect]
     Active Substance: CLEVIDIPINE
     Dosage: UNK
     Route: 042

REACTIONS (1)
  - Blood pressure decreased [Recovered/Resolved]
